FAERS Safety Report 7482653-7 (Version None)
Quarter: 2011Q2

REPORT INFORMATION
  Report Type: 
  Country: None (occurrence: None)
  Receive Date: 20110516
  Receipt Date: 20110509
  Transmission Date: 20111010
  Serious: Yes (Other)
  Sender: FDA-Public Use
  Company Number: PHHY2011US22266

PATIENT
  Sex: Male
  Weight: 75.283 kg

DRUGS (1)
  1. GLEEVEC [Suspect]
     Indication: CHRONIC MYELOID LEUKAEMIA
     Dosage: 400 MG, QD
     Route: 048
     Dates: start: 20100527

REACTIONS (3)
  - NEOPLASM MALIGNANT [None]
  - HAEMOPTYSIS [None]
  - LUNG ADENOCARCINOMA STAGE IV [None]
